FAERS Safety Report 9331071 (Version 1)
Quarter: 2013Q2

REPORT INFORMATION
  Report Type: Spontaneous
  Country: BR (occurrence: BR)
  Receive Date: 20130605
  Receipt Date: 20130605
  Transmission Date: 20140414
  Serious: Yes (Life-Threatening, Disabling, Other)
  Sender: FDA-Public Use
  Company Number: BR-ROCHE-1232404

PATIENT
  Sex: 0

DRUGS (2)
  1. HERCEPTIN [Suspect]
     Indication: BREAST CANCER
     Route: 065
  2. ANASTROZOLE [Concomitant]

REACTIONS (3)
  - Cerebrovascular accident [Unknown]
  - Metastases to central nervous system [Unknown]
  - Abasia [Recovered/Resolved]
